FAERS Safety Report 8446383-7 (Version None)
Quarter: 2012Q2

REPORT INFORMATION
  Report Type: 
  Country: None (occurrence: None)
  Receive Date: 20120618
  Receipt Date: 20120207
  Transmission Date: 20120825
  Serious: Yes (Other)
  Sender: FDA-Public Use
  Company Number: US-TEVA-2011005749

PATIENT
  Sex: Male
  Weight: 95.34 kg

DRUGS (5)
  1. ACTIQ [Suspect]
     Indication: NEURALGIA
  2. ACTIQ [Suspect]
     Indication: NECK PAIN
  3. ACTIQ [Suspect]
     Indication: BACK PAIN
     Route: 002
     Dates: start: 20060101, end: 20070525
  4. DIAZEPAM [Concomitant]
  5. IBUPROFEN [Concomitant]

REACTIONS (2)
  - DENTAL CARIES [None]
  - DRUG PRESCRIBING ERROR [None]
